FAERS Safety Report 10667282 (Version 1)
Quarter: 2014Q4

REPORT INFORMATION
  Report Type: Spontaneous
  Country: US (occurrence: None)
  Receive Date: 20141218
  Receipt Date: 20141218
  Transmission Date: 20150529
  Serious: Yes (Other)
  Sender: FDA-Public Use
  Company Number: 2014-US-016302

PATIENT
  Sex: Female

DRUGS (1)
  1. XYREM [Suspect]
     Active Substance: SODIUM OXYBATE
     Indication: NARCOLEPSY
     Route: 048
     Dates: start: 201308, end: 2013

REACTIONS (9)
  - Fibromyalgia [None]
  - Dry mouth [None]
  - Muscle rupture [None]
  - Carpal tunnel syndrome [None]
  - Musculoskeletal pain [None]
  - Rheumatoid arthritis [None]
  - Condition aggravated [None]
  - Osteoarthritis [None]
  - Neck pain [None]
